FAERS Safety Report 8957790 (Version 3)
Quarter: 2013Q1

REPORT INFORMATION
  Report Type: Spontaneous
  Country: US (occurrence: US)
  Receive Date: 20121210
  Receipt Date: 20130103
  Transmission Date: 20140127
  Serious: No
  Sender: FDA-Public Use
  Company Number: US-PFIZER INC-2012308512

PATIENT
  Age: 69 Year
  Sex: Female
  Weight: 90.7 kg

DRUGS (14)
  1. RAMIPRIL [Suspect]
     Indication: BLOOD PRESSURE ABNORMAL
     Dosage: 20 MG, DAILY
  2. LYRICA [Interacting]
     Indication: DIABETIC NEUROPATHY
     Dosage: 50 MG, DAILY
     Dates: start: 2012
  3. LYRICA [Interacting]
     Indication: PAIN IN EXTREMITY
     Dosage: 50 MG, 2X/DAY
  4. LYRICA [Interacting]
     Indication: PAIN IN EXTREMITY
     Dosage: 50 MG, 3X/DAY
  5. LYRICA [Interacting]
     Indication: ARTHRALGIA
  6. LYRICA [Interacting]
     Indication: BACK PAIN
  7. LYRICA [Interacting]
     Indication: DIABETIC NEUROPATHY
  8. VICODIN [Concomitant]
     Indication: PAIN
     Dosage: 10/325 MG, 3X/DAY
  9. TYLENOL [Concomitant]
     Indication: PAIN
     Dosage: UNK
  10. METFORMIN HYDROCHLORIDE [Concomitant]
     Indication: TYPE 2 DIABETES MELLITUS
     Dosage: 1000 MG, 2X/DAY
  11. NOVOLOG [Concomitant]
     Indication: TYPE 2 DIABETES MELLITUS
     Dosage: 15 IU, 2X/DAY
  12. LANTUS [Concomitant]
     Indication: TYPE 2 DIABETES MELLITUS
     Dosage: 40 IU, 2X/DAY
  13. OMEPRAZOLE [Concomitant]
     Indication: HYPERCHLORHYDRIA
     Dosage: 20 MG,  DAILY
  14. HYDROCHLOROTHIAZIDE [Concomitant]
     Indication: BLOOD PRESSURE ABNORMAL
     Dosage: UNK

REACTIONS (3)
  - Drug interaction [Unknown]
  - Hypersomnia [Unknown]
  - Drug ineffective [Unknown]
